FAERS Safety Report 5457248-7 (Version None)
Quarter: 2007Q3

REPORT INFORMATION
  Report Type: 
  Country: None (occurrence: None)
  Receive Date: 20070918
  Receipt Date: 20070207
  Transmission Date: 20080115
  Serious: No
  Sender: FDA-Public Use
  Company Number: US-ASTRAZENECA-2007UW02630

PATIENT
  Sex: Male

DRUGS (2)
  1. SEROQUEL [Suspect]
     Dosage: 200 MG QAM, 200 MG Q4PM, 300 MG HS
     Route: 048
     Dates: start: 20070101
  2. SEROQUEL [Suspect]
     Route: 048
     Dates: end: 20070101

REACTIONS (1)
  - SKIN DISCOLOURATION [None]
